FAERS Safety Report 8141590-5 (Version None)
Quarter: 2012Q1

REPORT INFORMATION
  Report Type: 
  Country: None (occurrence: None)
  Receive Date: 20120216
  Receipt Date: 20120213
  Transmission Date: 20120608
  Serious: Yes (Other)
  Sender: FDA-Public Use
  Company Number: US-GILEAD-2012-0050470

PATIENT
  Sex: Male

DRUGS (2)
  1. LETAIRIS [Suspect]
     Indication: PULMONARY HYPERTENSION
     Dosage: 10 MG, UNK
     Route: 048
     Dates: start: 20110817
  2. LETAIRIS [Suspect]
     Indication: IDIOPATHIC PULMONARY FIBROSIS

REACTIONS (3)
  - RESPIRATORY TRACT INFECTION [None]
  - LUNG NEOPLASM [None]
  - COUGH [None]
